FAERS Safety Report 15589921 (Version 2)
Quarter: 2019Q1

REPORT INFORMATION
  Report Type: Spontaneous
  Country: JP (occurrence: JP)
  Receive Date: 20181106
  Receipt Date: 20190125
  Transmission Date: 20190417
  Serious: Yes (Hospitalization, Other)
  Sender: FDA-Public Use
  Company Number: JP-OTSUKA-2018_035324

PATIENT
  Age: 67 Year
  Sex: Male

DRUGS (6)
  1. NIFEDIPINE. [Concomitant]
     Active Substance: NIFEDIPINE
     Indication: PRODUCT USED FOR UNKNOWN INDICATION
     Dosage: 20 MG, QD
     Route: 048
     Dates: start: 20180620
  2. SAMSCA [Suspect]
     Active Substance: TOLVAPTAN
     Dosage: 3.25 MG, QD
     Route: 048
     Dates: start: 20180309, end: 20180508
  3. SAMSCA [Suspect]
     Active Substance: TOLVAPTAN
     Indication: CIRRHOSIS ALCOHOLIC
     Dosage: 7.5 MG, QD
     Route: 048
     Dates: start: 20180509, end: 20180725
  4. LASIX [Concomitant]
     Active Substance: FUROSEMIDE
     Indication: PRODUCT USED FOR UNKNOWN INDICATION
     Dosage: 40 MG, QD
     Route: 048
     Dates: start: 20180306
  5. AMLODIPINE [Concomitant]
     Active Substance: AMLODIPINE BESYLATE
     Indication: PRODUCT USED FOR UNKNOWN INDICATION
     Dosage: 5 MG, QD
     Route: 048
     Dates: start: 20180227, end: 20180619
  6. SAMSCA [Suspect]
     Active Substance: TOLVAPTAN
     Indication: ASCITES
     Dosage: 7.5 MG, QD
     Route: 048
     Dates: start: 20180301, end: 20180308

REACTIONS (2)
  - Organising pneumonia [Not Recovered/Not Resolved]
  - Renal failure [Unknown]

NARRATIVE: CASE EVENT DATE: 20180620
